FAERS Safety Report 19061108 (Version 1)
Quarter: 2021Q1

REPORT INFORMATION
  Report Type: Spontaneous
  Country: US (occurrence: US)
  Receive Date: 20210325
  Receipt Date: 20210325
  Transmission Date: 20210420
  Serious: Yes (Other)
  Sender: FDA-Public Use
  Company Number: US-SUNOVION-2021SUN000980

PATIENT
  Age: 45 Year
  Sex: Female

DRUGS (2)
  1. LATUDA [Suspect]
     Active Substance: LURASIDONE HYDROCHLORIDE
     Dosage: 40 MG
     Route: 048
  2. LATUDA [Suspect]
     Active Substance: LURASIDONE HYDROCHLORIDE
     Dosage: 60 MG, QD
     Route: 048

REACTIONS (8)
  - Tachyphrenia [Unknown]
  - Mania [Unknown]
  - Feeding disorder [Unknown]
  - Mental disorder [Unknown]
  - Insomnia [Unknown]
  - Illness [Unknown]
  - Psychomotor hyperactivity [Unknown]
  - Therapy cessation [Unknown]
